FAERS Safety Report 4768751-7 (Version None)
Quarter: 2005Q3

REPORT INFORMATION
  Report Type: 
  Country: None (occurrence: None)
  Receive Date: 20050914
  Receipt Date: 20050824
  Transmission Date: 20060218
  Serious: Yes (Hospitalization)
  Sender: FDA-Public Use
  Company Number: DE-GLAXOSMITHKLINE-D0047369A

PATIENT
  Age: 38 Year
  Sex: Female

DRUGS (2)
  1. VIANI [Suspect]
     Indication: ASTHMA
     Dosage: 300MCG TWICE PER DAY
     Route: 055
  2. FLUTIDE [Suspect]
     Indication: ASTHMA
     Route: 065

REACTIONS (5)
  - DIZZINESS [None]
  - DRUG INTOLERANCE [None]
  - HYPOKALAEMIA [None]
  - MUSCLE SPASMS [None]
  - TACHYCARDIA [None]
